FAERS Safety Report 4399417-3 (Version None)
Quarter: 2004Q3

REPORT INFORMATION
  Report Type: 
  Country: None (occurrence: None)
  Receive Date: 20040712
  Receipt Date: 20040706
  Transmission Date: 20050211
  Serious: Yes (Death)
  Sender: FDA-Public Use
  Company Number: 04-07-0964

PATIENT
  Age: 56 Year
  Sex: Male

DRUGS (1)
  1. CLOZAPINE IVAX PHARMACEUTICALS INC TABLETS [Suspect]
     Indication: SCHIZOPHRENIA
     Dosage: 800 MG QD ORAL
     Route: 048
     Dates: start: 19990901, end: 20040501

REACTIONS (4)
  - LUNG NEOPLASM MALIGNANT [None]
  - METASTASES TO CENTRAL NERVOUS SYSTEM [None]
  - PNEUMONIA [None]
  - WEIGHT DECREASED [None]
